FAERS Safety Report 8105863-4 (Version None)
Quarter: 2012Q1

REPORT INFORMATION
  Report Type: 
  Country: None (occurrence: None)
  Receive Date: 20120202
  Receipt Date: 20120126
  Transmission Date: 20120608
  Serious: Yes (Hospitalization)
  Sender: FDA-Public Use
  Company Number: US-BIOGENIDEC-2010BI018208

PATIENT
  Age: 58 Year
  Sex: Male

DRUGS (3)
  1. AVONEX [Suspect]
     Indication: MULTIPLE SCLEROSIS
     Route: 030
     Dates: start: 19991211, end: 20030101
  2. AVONEX [Suspect]
     Route: 030
     Dates: start: 20100126
  3. AVONEX [Suspect]
     Route: 030
     Dates: start: 20030101

REACTIONS (7)
  - FALL [None]
  - NECROTISING FASCIITIS [None]
  - TENDON RUPTURE [None]
  - BURNING SENSATION [None]
  - CELLULITIS [None]
  - POST PROCEDURAL COMPLICATION [None]
  - PROCEDURAL PAIN [None]
